FAERS Safety Report 7512090-8 (Version None)
Quarter: 2011Q2

REPORT INFORMATION
  Report Type: 
  Country: None (occurrence: None)
  Receive Date: 20110520
  Receipt Date: 20110506
  Transmission Date: 20111010
  Serious: Yes (Hospitalization)
  Sender: FDA-Public Use
  Company Number: 2011SP001386

PATIENT
  Age: 75 Year
  Sex: Female

DRUGS (13)
  1. ALVESCO [Suspect]
     Indication: ASTHMA
     Dosage: 400 UG QD, INHALATION
     Route: 055
     Dates: start: 20090610
  2. CLARUTE-R [Concomitant]
  3. HALCION [Concomitant]
  4. ONON [Concomitant]
  5. CLARITHROMYCIN [Concomitant]
  6. CLEANAL [Concomitant]
  7. MUCOSTA [Concomitant]
  8. MEPTIN [Concomitant]
  9. LOXONIN [Concomitant]
  10. UNIPHYL [Concomitant]
  11. OMEPRAZOLE [Concomitant]
  12. LASIX [Concomitant]
  13. INTAL [Concomitant]

REACTIONS (2)
  - FALL [None]
  - LOWER LIMB FRACTURE [None]
